FAERS Safety Report 9792962 (Version 1)
Quarter: 2014Q1

REPORT INFORMATION
  Report Type: Spontaneous
  Country: GB (occurrence: GB)
  Receive Date: 20140102
  Receipt Date: 20140102
  Transmission Date: 20141002
  Serious: Yes (Hospitalization)
  Sender: FDA-Public Use
  Company Number: GB-MILLENNIUM PHARMACEUTICALS, INC.-2014TEU000013

PATIENT
  Age: 61 Year
  Sex: Female

DRUGS (4)
  1. PIOGLITAZONE [Suspect]
     Indication: PRODUCT USED FOR UNKNOWN INDICATION
  2. GLIPIZIDE [Concomitant]
     Dosage: 160 MG, BID
  3. THYROXINE [Concomitant]
     Dosage: 125 ?G, QD
  4. ATORVASTATIN [Concomitant]
     Dosage: 10 MG, QD

REACTIONS (1)
  - Acute pulmonary oedema [Recovered/Resolved]
